FAERS Safety Report 7514299-6 (Version None)
Quarter: 2011Q2

REPORT INFORMATION
  Report Type: 
  Country: None (occurrence: None)
  Receive Date: 20110601
  Receipt Date: 20110523
  Transmission Date: 20111010
  Serious: Yes (Hospitalization)
  Sender: FDA-Public Use
  Company Number: US-BIOGENIDEC-2011BI019474

PATIENT
  Sex: Female

DRUGS (2)
  1. AVONEX [Suspect]
     Indication: MULTIPLE SCLEROSIS
     Route: 030
     Dates: start: 20080828
  2. AVONEX [Suspect]
     Route: 030
     Dates: start: 20070518, end: 20071130

REACTIONS (2)
  - BLOOD PRESSURE INCREASED [None]
  - BLINDNESS UNILATERAL [None]
